FAERS Safety Report 7470200-5 (Version None)
Quarter: 2011Q2

REPORT INFORMATION
  Report Type: 
  Country: None (occurrence: None)
  Receive Date: 20110510
  Receipt Date: 20110505
  Transmission Date: 20111010
  Serious: Yes (Hospitalization)
  Sender: FDA-Public Use
  Company Number: US-CEPHALON-2011000981

PATIENT
  Sex: Female
  Weight: 123 kg

DRUGS (7)
  1. MIRAPEX [Concomitant]
     Dates: start: 20100101
  2. PROVIGIL [Suspect]
     Route: 048
     Dates: start: 20100101
  3. DICLOFENAC [Concomitant]
  4. METOPROLOL SUCCINATE [Concomitant]
     Dates: start: 20010101
  5. ESTRADIOL [Concomitant]
     Dates: start: 19910101
  6. CRESTOR [Concomitant]
  7. PANTOPRAZOLE [Concomitant]
     Dates: start: 20090101

REACTIONS (3)
  - CELLULITIS [None]
  - KNEE OPERATION [None]
  - ABSCESS LIMB [None]
